FAERS Safety Report 4537522-9 (Version None)
Quarter: 2004Q4

REPORT INFORMATION
  Report Type: 
  Country: None (occurrence: None)
  Receive Date: 20041223
  Receipt Date: 20041213
  Transmission Date: 20050328
  Serious: Yes (Life-Threatening, Hospitalization, Disabling)
  Sender: FDA-Public Use
  Company Number: US-MERCK-0412USA01610

PATIENT
  Age: 55 Year
  Sex: Female

DRUGS (4)
  1. VIOXX [Suspect]
     Indication: ARTHRITIS
     Route: 048
     Dates: end: 20040101
  2. PREMARIN [Concomitant]
     Route: 065
  3. ALPRAZOLAM [Concomitant]
     Route: 065
  4. NITRO [Concomitant]
     Route: 065

REACTIONS (3)
  - ABDOMINAL DISCOMFORT [None]
  - HYPERTENSION [None]
  - LOSS OF CONSCIOUSNESS [None]
